FAERS Safety Report 5023358-1 (Version None)
Quarter: 2006Q2

REPORT INFORMATION
  Report Type: 
  Country: None (occurrence: None)
  Receive Date: 20060525
  Receipt Date: 20060518
  Transmission Date: 20061013
  Serious: Yes (Death)
  Sender: FDA-Public Use
  Company Number: FRWYE508427MAR06

PATIENT
  Age: 45 Year
  Sex: Male

DRUGS (1)
  1. REFACTO [Suspect]
     Indication: FACTOR VIII DEFICIENCY
     Dosage: TOTAL OF 4 INJECTIONS INTRAVENOUS
     Route: 042
     Dates: start: 20051001, end: 20051001

REACTIONS (2)
  - COAGULATION FACTOR VIII LEVEL DECREASED [None]
  - INTRAVENTRICULAR HAEMORRHAGE [None]
